FAERS Safety Report 22396988 (Version 1)
Quarter: 2023Q2

REPORT INFORMATION
  Report Type: Spontaneous
  Country: CN (occurrence: None)
  Receive Date: 20230602
  Receipt Date: 20230602
  Transmission Date: 20230722
  Serious: Yes (Other)
  Sender: FDA-Public Use
  Company Number: CN-ROCHE-3359852

PATIENT
  Age: 57 Year
  Sex: Female
  Weight: 45 kg

DRUGS (4)
  1. KADCYLA [Suspect]
     Active Substance: ADO-TRASTUZUMAB EMTANSINE
     Indication: Breast cancer
     Route: 041
     Dates: start: 20230504, end: 20230504
  2. SODIUM CHLORIDE [Concomitant]
     Active Substance: SODIUM CHLORIDE
     Route: 041
     Dates: start: 20230504, end: 20230504
  3. STERILE WATER FOR INJECTION [Concomitant]
     Active Substance: WATER
     Route: 041
     Dates: start: 20230504, end: 20230504
  4. INDOMETHACIN [Concomitant]
     Active Substance: INDOMETHACIN

REACTIONS (1)
  - Hyperpyrexia [Recovering/Resolving]

NARRATIVE: CASE EVENT DATE: 20230505
